FAERS Safety Report 4577208-8 (Version None)
Quarter: 2005Q1

REPORT INFORMATION
  Report Type: 
  Country: None (occurrence: None)
  Receive Date: 20050208
  Receipt Date: 20050125
  Transmission Date: 20050727
  Serious: Yes (Hospitalization, Other)
  Sender: FDA-Public Use
  Company Number: 2005020573

PATIENT
  Age: 54 Year
  Sex: Female

DRUGS (10)
  1. GEODON [Suspect]
     Indication: BIPOLAR DISORDER
     Dosage: (20 MG, 2 IN 1 D), ORAL/31MAY - 02JUN
     Route: 048
  2. QUETIAPINE FUMARATE [Concomitant]
  3. VENLAFAXINE HCL [Concomitant]
  4. CLONAZEPAM [Concomitant]
  5. GABAPENTIN [Concomitant]
  6. CITALOPRAM HYDROBROMIDE [Concomitant]
  7. LEVOTHYROXINE SODIUM [Concomitant]
  8. OMEPRAZOLE [Concomitant]
  9. TRIMETHOBENZAMIDE (TRIMETHOBENZAMIDE) [Concomitant]
  10. CARBAMAZEPINE [Concomitant]

REACTIONS (2)
  - DYSTONIA [None]
  - MYOCLONUS [None]
